FAERS Safety Report 25757685 (Version 1)
Quarter: 2025Q3

REPORT INFORMATION
  Report Type: Spontaneous
  Country: EU (occurrence: EU)
  Receive Date: 20250903
  Receipt Date: 20250903
  Transmission Date: 20251021
  Serious: Yes (Other)
  Sender: MYLAN
  Company Number: None

PATIENT
  Age: 36 Year
  Sex: Female
  Weight: 50 kg

DRUGS (4)
  1. PREGABALIN [Suspect]
     Active Substance: PREGABALIN
     Indication: Procedural pain
     Dosage: 50 MILLIGRAM, BID (2 TABLETS TWICE A DAY; AFTER 3 MONTHS, 1 TABLET TWICE A DAY )
     Dates: start: 20250101
  2. PREGABALIN [Suspect]
     Active Substance: PREGABALIN
     Dosage: 50 MILLIGRAM, BID (2 TABLETS TWICE A DAY; AFTER 3 MONTHS, 1 TABLET TWICE A DAY )
     Route: 048
     Dates: start: 20250101
  3. PREGABALIN [Suspect]
     Active Substance: PREGABALIN
     Dosage: 50 MILLIGRAM, BID (2 TABLETS TWICE A DAY; AFTER 3 MONTHS, 1 TABLET TWICE A DAY )
     Route: 048
     Dates: start: 20250101
  4. PREGABALIN [Suspect]
     Active Substance: PREGABALIN
     Dosage: 50 MILLIGRAM, BID (2 TABLETS TWICE A DAY; AFTER 3 MONTHS, 1 TABLET TWICE A DAY )
     Dates: start: 20250101

REACTIONS (4)
  - Panic attack [Recovered/Resolved]
  - Mood swings [Recovered/Resolved]
  - Depressed mood [Recovered/Resolved]
  - Withdrawal syndrome [Recovered/Resolved]
